FAERS Safety Report 17834599 (Version 1)
Quarter: 2020Q2

REPORT INFORMATION
  Report Type: Spontaneous
  Country: CN (occurrence: CN)
  Receive Date: 20200528
  Receipt Date: 20200528
  Transmission Date: 20200714
  Serious: Yes (Other)
  Sender: FDA-Public Use
  Company Number: CN-BAXTER-2020BAX010861

PATIENT
  Age: 65 Year
  Sex: Female
  Weight: 60 kg

DRUGS (2)
  1. ENDOXAN [Suspect]
     Active Substance: CYCLOPHOSPHAMIDE
     Indication: RENAL CANCER
     Dosage: CYCLOPHOSPHAMIDE FOR INJECTION 0.4G + 0.9% SODIUM CHLORIDE 100ML
     Route: 041
     Dates: start: 20200430, end: 20200505
  2. 0.9% SODIUM CHLORIDE INJECTION [Suspect]
     Active Substance: SODIUM CHLORIDE
     Indication: MEDICATION DILUTION
     Dosage: CYCLOPHOSPHAMIDE FOR INJECTION 0.4G + 0.9% SODIUM CHLORIDE 100ML
     Route: 041
     Dates: start: 20200430, end: 20200505

REACTIONS (5)
  - Vomiting [Recovering/Resolving]
  - Bone marrow failure [Recovering/Resolving]
  - Nausea [Recovering/Resolving]
  - Decreased appetite [Recovering/Resolving]
  - Fatigue [Recovering/Resolving]

NARRATIVE: CASE EVENT DATE: 20200505
